FAERS Safety Report 11675827 (Version 2)
Quarter: 2015Q4

REPORT INFORMATION
  Report Type: Spontaneous
  Country: AT (occurrence: AT)
  Receive Date: 20151028
  Receipt Date: 20151130
  Transmission Date: 20160304
  Serious: Yes (Other)
  Sender: FDA-Public Use
  Company Number: AT-JNJFOC-20151020822

PATIENT
  Age: 58 Year
  Sex: Male
  Weight: 84 kg

DRUGS (2)
  1. XARELTO [Suspect]
     Active Substance: RIVAROXABAN
     Indication: CEREBROVASCULAR ACCIDENT PROPHYLAXIS
     Route: 048
     Dates: start: 20141202, end: 201503
  2. XARELTO [Suspect]
     Active Substance: RIVAROXABAN
     Indication: ATRIAL FIBRILLATION
     Route: 048
     Dates: start: 20141202, end: 201503

REACTIONS (6)
  - Abasia [Recovered/Resolved]
  - Fear [Recovered/Resolved]
  - Nervous system disorder [Recovered/Resolved]
  - Movement disorder [Recovered/Resolved]
  - Memory impairment [Recovered/Resolved]
  - Mental impairment [Recovered/Resolved]

NARRATIVE: CASE EVENT DATE: 201503
